FAERS Safety Report 4643075-7 (Version None)
Quarter: 2005Q2

REPORT INFORMATION
  Report Type: 
  Country: None (occurrence: None)
  Receive Date: 20050421
  Receipt Date: 20050405
  Transmission Date: 20051028
  Serious: Yes (Hospitalization)
  Sender: FDA-Public Use
  Company Number: 2005BI007231

PATIENT
  Age: 52 Year
  Sex: Female

DRUGS (1)
  1. AVONEX [Suspect]
     Indication: MULTIPLE SCLEROSIS
     Dosage: 30 UG; QW; IM
     Route: 030
     Dates: start: 20010512, end: 20010901

REACTIONS (9)
  - ALOPECIA [None]
  - AMNESIA [None]
  - DIZZINESS [None]
  - FATIGUE [None]
  - HYPODONTIA [None]
  - MEMORY IMPAIRMENT [None]
  - SEXUAL ASSAULT VICTIM [None]
  - STRESS [None]
  - VISUAL ACUITY REDUCED [None]
